FAERS Safety Report 16034544 (Version 1)
Quarter: 2019Q1

REPORT INFORMATION
  Report Type: Spontaneous
  Country: US (occurrence: US)
  Receive Date: 20190205
  Receipt Date: 20190205
  Transmission Date: 20190418
  Serious: Yes (Hospitalization)
  Sender: FDA-Public Use
  Company Number: None

PATIENT
  Age: 45 Year
  Sex: Male
  Weight: 80 kg

DRUGS (4)
  1. CISPLATIN. [Suspect]
     Active Substance: CISPLATIN
     Dates: end: 20180921
  2. IFOSFAMIDE. [Suspect]
     Active Substance: IFOSFAMIDE
     Dates: end: 20180921
  3. TAXOL [Suspect]
     Active Substance: PACLITAXEL
     Dates: end: 20180917
  4. NEULASTA [Suspect]
     Active Substance: PEGFILGRASTIM
     Dates: end: 20180922

REACTIONS (5)
  - Febrile neutropenia [None]
  - Renal failure [None]
  - Septic shock [None]
  - Toxicity to various agents [None]
  - Renal tubular disorder [None]

NARRATIVE: CASE EVENT DATE: 20180925
